FAERS Safety Report 9491122 (Version 1)
Quarter: 2013Q3

REPORT INFORMATION
  Report Type: Spontaneous
  Country: US (occurrence: None)
  Receive Date: 20130826
  Receipt Date: 20130826
  Transmission Date: 20140515
  Serious: Yes (Death)
  Sender: FDA-Public Use
  Company Number: 2013STPI000331

PATIENT
  Age: 50 Year
  Sex: Male

DRUGS (1)
  1. MATULANE [Suspect]
     Indication: NEOPLASM MALIGNANT
     Route: 048
     Dates: start: 20130423, end: 20130703

REACTIONS (1)
  - Death [None]
